FAERS Safety Report 13565204 (Version 1)
Quarter: 2017Q2

REPORT INFORMATION
  Report Type: Spontaneous
  Country: US (occurrence: US)
  Receive Date: 20170519
  Receipt Date: 20170519
  Transmission Date: 20170830
  Serious: No
  Sender: FDA-Public Use
  Company Number: US-TEVA-760956ACC

PATIENT
  Age: 40 Year
  Sex: Female

DRUGS (1)
  1. COPAXONE [Suspect]
     Active Substance: GLATIRAMER ACETATE
     Indication: MULTIPLE SCLEROSIS
     Route: 058
     Dates: start: 20170318

REACTIONS (4)
  - Pharyngitis [Unknown]
  - Hair growth abnormal [Unknown]
  - Gastroenteritis viral [Unknown]
  - Local swelling [Unknown]

NARRATIVE: CASE EVENT DATE: 20170406
